FAERS Safety Report 10258625 (Version 1)
Quarter: 2014Q2

REPORT INFORMATION
  Report Type: Spontaneous
  Country: DE (occurrence: None)
  Receive Date: 20140623
  Receipt Date: 20140623
  Transmission Date: 20141212
  Serious: Yes (Life-Threatening, Hospitalization)
  Sender: FDA-Public Use
  Company Number: DE-016044

PATIENT
  Age: 72 Year
  Sex: Female
  Weight: 75 kg

DRUGS (1)
  1. PICOPREP (PICOPREP) 2 DF (NOT SPECIFIED) [Suspect]
     Indication: BOWEL PREPARATION
     Dosage: ( 2 DF TOTAL, + 3-4 LITRE FLUID ORAL)
     Route: 048
     Dates: start: 20140521

REACTIONS (3)
  - Hyponatraemia [None]
  - Confusional state [None]
  - Somnolence [None]
